FAERS Safety Report 23202252 (Version 6)
Quarter: 2024Q1

REPORT INFORMATION
  Report Type: Spontaneous
  Country: US (occurrence: US)
  Receive Date: 20231120
  Receipt Date: 20240214
  Transmission Date: 20240410
  Serious: Yes (Disabling, Other)
  Sender: FDA-Public Use
  Company Number: US-REGENERON PHARMACEUTICALS, INC.-2023-139477

PATIENT
  Sex: Male

DRUGS (3)
  1. EYLEA [Suspect]
     Active Substance: AFLIBERCEPT
     Indication: Diabetic retinopathy
     Dosage: 2 MG, BASED ON CLINICIAN^S DISCRETION, INTO RIGHT EYE, (FORMULATION: PFS GERRESHEIMER), 2MG/0.05ML
     Dates: start: 20220907, end: 20231115
  2. EYLEA [Suspect]
     Active Substance: AFLIBERCEPT
     Indication: Diabetic retinal oedema
     Dosage: 2 MG, BASED ON CLINICIAN^S DISCRETION, INTO RIGHT EYE, (FORMULATION: PFS GERRESHEIMER), 2MG/0.05ML
     Dates: start: 2023
  3. METFORMIN [Concomitant]
     Active Substance: METFORMIN HYDROCHLORIDE
     Indication: Product used for unknown indication

REACTIONS (3)
  - Blindness unilateral [Recovered/Resolved]
  - Non-infectious endophthalmitis [Recovered/Resolved]
  - Visual acuity reduced [Unknown]

NARRATIVE: CASE EVENT DATE: 20230101
